FAERS Safety Report 7012029-8 (Version None)
Quarter: 2010Q3

REPORT INFORMATION
  Report Type: 
  Country: None (occurrence: None)
  Receive Date: 20100924
  Receipt Date: 20100922
  Transmission Date: 20110219
  Serious: Yes (Hospitalization)
  Sender: FDA-Public Use
  Company Number: FR-BAYER-201022879GPV

PATIENT
  Age: 79 Year
  Sex: Male
  Weight: 59 kg

DRUGS (5)
  1. NEXAVAR [Suspect]
     Indication: HEPATIC NEOPLASM MALIGNANT
     Route: 048
     Dates: start: 20100331, end: 20100405
  2. NEXAVAR [Suspect]
     Route: 048
     Dates: start: 20100412
  3. METFORMIN HCL [Concomitant]
     Route: 048
  4. KARDEGIC [Concomitant]
  5. NISIS [Concomitant]

REACTIONS (1)
  - ASTHENIA [None]
